FAERS Safety Report 7304972-7 (Version None)
Quarter: 2011Q1

REPORT INFORMATION
  Report Type: 
  Country: None (occurrence: None)
  Receive Date: 20110222
  Receipt Date: 20110216
  Transmission Date: 20110831
  Serious: Yes (Other)
  Sender: FDA-Public Use
  Company Number: AR-BRISTOL-MYERS SQUIBB COMPANY-15554744

PATIENT
  Age: 52 Year
  Sex: Female

DRUGS (5)
  1. COAPROVEL TABS 300MG/ 25MG [Suspect]
     Indication: HYPERTENSION
     Dosage: 1DF=150/12.5 MG/DAY;THERAPY DURATION:APPROX 3 YRS
     Route: 048
     Dates: start: 20080101
  2. CLONAZEPAM [Concomitant]
     Route: 048
     Dates: start: 20080101
  3. LEVOTHYROXINE SODIUM [Concomitant]
     Route: 048
     Dates: start: 20070101
  4. AMBIEN [Concomitant]
     Route: 048
     Dates: start: 20080101
  5. FLUOXETINE [Concomitant]
     Route: 048
     Dates: start: 20080101

REACTIONS (7)
  - MALAISE [None]
  - HYPERHIDROSIS [None]
  - CONJUNCTIVAL HAEMORRHAGE [None]
  - NAUSEA [None]
  - PALPITATIONS [None]
  - HYPERTENSION [None]
  - HOT FLUSH [None]
